FAERS Safety Report 25539014 (Version 1)
Quarter: 2025Q3

REPORT INFORMATION
  Report Type: Spontaneous
  Country: US (occurrence: US)
  Receive Date: 20250710
  Receipt Date: 20250710
  Transmission Date: 20251021
  Serious: No
  Sender: SANOFI AVENTIS
  Company Number: US-SA-2025SA194160

PATIENT
  Sex: Male
  Weight: 91.36 kg

DRUGS (2)
  1. DUPIXENT [Suspect]
     Active Substance: DUPILUMAB
     Indication: Asthma
     Dosage: 300 MG, QOW
     Route: 058
  2. ALBUTEROL SULFATE [Concomitant]
     Active Substance: ALBUTEROL SULFATE

REACTIONS (6)
  - Paraesthesia [Unknown]
  - Hypoaesthesia [Unknown]
  - Vein disorder [Unknown]
  - Neck pain [Unknown]
  - Musculoskeletal stiffness [Unknown]
  - Arthritis [Unknown]
